FAERS Safety Report 22737552 (Version 4)
Quarter: 2023Q4

REPORT INFORMATION
  Report Type: Spontaneous
  Country: US (occurrence: US)
  Receive Date: 20230721
  Receipt Date: 20231220
  Transmission Date: 20240109
  Serious: Yes (Hospitalization, Other)
  Sender: FDA-Public Use
  Company Number: US-TAKEDA-2023TUS071506

PATIENT
  Sex: Female

DRUGS (8)
  1. GATTEX [Suspect]
     Active Substance: TEDUGLUTIDE\WATER
     Indication: Short-bowel syndrome
     Dosage: 423 MILLILITER, QD
     Route: 058
     Dates: end: 20231101
  2. GATTEX [Suspect]
     Active Substance: TEDUGLUTIDE\WATER
     Indication: Short-bowel syndrome
     Dosage: 423 MILLILITER, QD
     Route: 058
     Dates: end: 20231101
  3. GATTEX [Suspect]
     Active Substance: TEDUGLUTIDE\WATER
     Indication: Short-bowel syndrome
     Dosage: 423 MILLILITER, QD
     Route: 058
     Dates: end: 20231101
  4. GATTEX [Suspect]
     Active Substance: TEDUGLUTIDE\WATER
     Indication: Short-bowel syndrome
     Dosage: 423 MILLILITER, QD
     Route: 058
     Dates: end: 20231101
  5. GATTEX [Suspect]
     Active Substance: TEDUGLUTIDE\WATER
     Dosage: 423 MILLILITER, QD
     Route: 058
     Dates: start: 20231214
  6. GATTEX [Suspect]
     Active Substance: TEDUGLUTIDE\WATER
     Dosage: 423 MILLILITER, QD
     Route: 058
     Dates: start: 20231214
  7. GATTEX [Suspect]
     Active Substance: TEDUGLUTIDE\WATER
     Dosage: 423 MILLILITER, QD
     Route: 058
     Dates: start: 20231214
  8. GATTEX [Suspect]
     Active Substance: TEDUGLUTIDE\WATER
     Dosage: 423 MILLILITER, QD
     Route: 058
     Dates: start: 20231214

REACTIONS (3)
  - Vascular device infection [Unknown]
  - Gastrointestinal necrosis [Unknown]
  - Intestinal obstruction [Unknown]
